FAERS Safety Report 21722812 (Version 1)
Quarter: 2022Q4

REPORT INFORMATION
  Report Type: Report from Study
  Country: US (occurrence: None)
  Receive Date: 20221213
  Receipt Date: 20221213
  Transmission Date: 20230113
  Serious: Yes (Life-Threatening, Hospitalization, Disabling)
  Sender: FDA-Public Use
  Company Number: US-Merck Healthcare KGaA-9344813

PATIENT
  Sex: Female

DRUGS (1)
  1. MAVENCLAD [Suspect]
     Active Substance: CLADRIBINE
     Indication: Multiple sclerosis
     Dosage: YEAR ONE THERAPY
     Route: 048
     Dates: start: 20211220

REACTIONS (10)
  - Encephalitis autoimmune [Unknown]
  - Coma [Unknown]
  - Loss of consciousness [Unknown]
  - Seizure [Unknown]
  - Mobility decreased [Recovered/Resolved]
  - Hallucination [Recovered/Resolved]
  - Hypotension [Unknown]
  - Aphasia [Recovered/Resolved]
  - Amnesia [Unknown]
  - Incorrect dosage administered [Unknown]
